FAERS Safety Report 9817784 (Version 2)
Quarter: 2013Q4

REPORT INFORMATION
  Report Type: Spontaneous
  Country: US (occurrence: None)
  Receive Date: 20131127
  Receipt Date: 20131127
  Transmission Date: 20140711
  Serious: No
  Sender: FDA-Public Use
  Company Number: 219370

PATIENT
  Age: 67 Year
  Sex: Female

DRUGS (2)
  1. PICATO (0.015 %, GEL) [Suspect]
     Indication: ACTINIC KERATOSIS
     Dosage: (QD X 3 DAYS)
     Route: 061
     Dates: start: 20121015, end: 20121017
  2. PICATO (0.015 %, GEL) [Suspect]
     Indication: ACTINIC KERATOSIS
     Dosage: (QD X 3 DAYS)
     Route: 061
     Dates: start: 20121015, end: 20121017

REACTIONS (10)
  - Application site burn [None]
  - Application site erythema [None]
  - Application site dryness [None]
  - Application site exfoliation [None]
  - Off label use [None]
  - Incorrect dose administered [None]
  - Drug administered at inappropriate site [None]
  - Application site pain [None]
  - Application site scab [None]
  - Application site pain [None]
